FAERS Safety Report 6292786-9 (Version None)
Quarter: 2009Q3

REPORT INFORMATION
  Report Type: 
  Country: None (occurrence: None)
  Receive Date: 20090731
  Receipt Date: 20090723
  Transmission Date: 20100115
  Serious: Yes (Death)
  Sender: FDA-Public Use
  Company Number: US-NOVOPROD-289707

PATIENT
  Age: 68 Year
  Sex: Female
  Weight: 45.351 kg

DRUGS (2)
  1. NOVOSEVEN RT [Suspect]
     Indication: GASTRIC HAEMORRHAGE
     Dosage: UNK, QD
     Route: 042
     Dates: start: 20090101, end: 20090101
  2. MORPHINE [Concomitant]
     Indication: PAIN
     Dates: start: 20090101, end: 20090101

REACTIONS (1)
  - DEATH [None]
